FAERS Safety Report 4910569-6 (Version None)
Quarter: 2006Q1

REPORT INFORMATION
  Report Type: 
  Country: None (occurrence: None)
  Receive Date: 20060214
  Receipt Date: 20060201
  Transmission Date: 20060701
  Serious: Yes (Other)
  Sender: FDA-Public Use
  Company Number: JP-ROCHE-435099

PATIENT
  Age: 66 Year
  Sex: Male

DRUGS (3)
  1. TAMIFLU [Suspect]
     Route: 048
     Dates: start: 20060124
  2. VOLTAREN [Concomitant]
     Route: 054
  3. LOXONIN [Concomitant]
     Route: 048

REACTIONS (3)
  - BRADYCARDIA [None]
  - CHEST DISCOMFORT [None]
  - VENTRICULAR EXTRASYSTOLES [None]
